FAERS Safety Report 5530814-6 (Version None)
Quarter: 2007Q4

REPORT INFORMATION
  Report Type: 
  Country: None (occurrence: None)
  Receive Date: 20071130
  Receipt Date: 20071126
  Transmission Date: 20080405
  Serious: Yes (Hospitalization)
  Sender: FDA-Public Use
  Company Number: FR-WYE-G00674807

PATIENT
  Sex: Female

DRUGS (7)
  1. TAZOCILLINE [Suspect]
     Indication: INFECTION
     Dosage: UNKNOWN
     Route: 042
     Dates: start: 20070516, end: 20070603
  2. CORDARONE [Concomitant]
     Indication: ARRHYTHMIA
     Route: 042
     Dates: start: 20070516
  3. VITAMIN K [Concomitant]
     Indication: HAEMORRHAGE PROPHYLAXIS
     Route: 042
     Dates: start: 20070531, end: 20070602
  4. PANTOPRAZOLE SODIUM [Concomitant]
     Indication: GASTROOESOPHAGEAL REFLUX DISEASE
     Route: 042
     Dates: start: 20070501
  5. LASIX [Concomitant]
     Indication: HYPERTENSION
     Route: 042
     Dates: start: 20070531
  6. VANCOMYCIN [Suspect]
     Indication: INFECTION
     Dosage: UNKNOWN
     Route: 042
     Dates: start: 20070516, end: 20070602
  7. KEPPRA [Concomitant]
     Route: 042
     Dates: start: 20070516

REACTIONS (2)
  - DRUG ERUPTION [None]
  - RASH MACULO-PAPULAR [None]
